FAERS Safety Report 9537835 (Version 3)
Quarter: 2013Q4

REPORT INFORMATION
  Report Type: Report from Study
  Country: BR (occurrence: BR)
  Receive Date: 20130919
  Receipt Date: 20131104
  Transmission Date: 20140711
  Serious: Yes (Other)
  Sender: FDA-Public Use
  Company Number: PHHY2013BR103885

PATIENT
  Sex: Female
  Weight: 20 kg

DRUGS (2)
  1. RITALIN LA [Suspect]
     Indication: ATTENTION DEFICIT/HYPERACTIVITY DISORDER
     Dosage: 1 DF, DAILY
     Dates: end: 201309
  2. RITALIN LA [Suspect]
     Dosage: UNK UKN, UNK

REACTIONS (6)
  - Mental retardation [Unknown]
  - Learning disorder [Unknown]
  - Aggression [Unknown]
  - Agitation [Unknown]
  - Nervousness [Unknown]
  - Tremor [Unknown]
